FAERS Safety Report 12995397 (Version 1)
Quarter: 2016Q4

REPORT INFORMATION
  Report Type: Spontaneous
  Country: US (occurrence: US)
  Receive Date: 20161202
  Receipt Date: 20161202
  Transmission Date: 20170207
  Serious: No
  Sender: FDA-Public Use
  Company Number: US-PERRIGO-16US020950

PATIENT
  Age: 1 Month
  Sex: Male
  Weight: 4.82 kg

DRUGS (1)
  1. LEVONORGESTREL. [Suspect]
     Active Substance: LEVONORGESTREL
     Indication: EXPOSURE DURING BREAST FEEDING
     Dosage: UNKNOWN, SINGLE VIA BREASTMILK
     Route: 048
     Dates: start: 20161012, end: 20161012

REACTIONS (1)
  - Exposure during breast feeding [Recovered/Resolved]

NARRATIVE: CASE EVENT DATE: 20161012
